FAERS Safety Report 5416771-1 (Version None)
Quarter: 2007Q3

REPORT INFORMATION
  Report Type: 
  Country: None (occurrence: None)
  Receive Date: 20070814
  Receipt Date: 20070808
  Transmission Date: 20080115
  Serious: Yes (Hospitalization)
  Sender: FDA-Public Use
  Company Number: 062-C5013-07070004

PATIENT
  Age: 75 Year
  Sex: Female
  Weight: 56 kg

DRUGS (6)
  1. LENALIDOMIDE [Suspect]
     Indication: MYELODYSPLASTIC SYNDROME
     Dosage: ORAL
     Route: 048
     Dates: start: 20070516, end: 20070615
  2. TOREM 10             (TORASEMIDE) [Concomitant]
  3. METOPROLOL TARTRATE [Concomitant]
  4. HEPARIN GEL      (HEPARIN) [Concomitant]
  5. VENOSTASIN RETARD                 (HORSE CHESTNUT EXTRACT) [Concomitant]
  6. EUCERIN          (EUCERIN CREME) [Concomitant]

REACTIONS (2)
  - ERYSIPELAS [None]
  - PANCYTOPENIA [None]
